FAERS Safety Report 14619636 (Version 1)
Quarter: 2018Q1

REPORT INFORMATION
  Report Type: Spontaneous
  Country: GB (occurrence: GB)
  Receive Date: 20180309
  Receipt Date: 20180309
  Transmission Date: 20180509
  Serious: Yes (Disabling, Other)
  Sender: FDA-Public Use
  Company Number: GB-BAYER-2018-041777

PATIENT
  Age: 23 Year
  Sex: Female
  Weight: 67 kg

DRUGS (1)
  1. JAYDESS [Suspect]
     Active Substance: LEVONORGESTREL
     Indication: DYSMENORRHOEA
     Dosage: 14 MCG/24HR, CONT
     Route: 015
     Dates: start: 20161012, end: 20180107

REACTIONS (6)
  - Decreased interest [Unknown]
  - Loss of libido [Unknown]
  - Abnormal weight gain [Unknown]
  - Dysmenorrhoea [Unknown]
  - Mood swings [Unknown]
  - Depression [Not Recovered/Not Resolved]
